FAERS Safety Report 9695712 (Version 1)
Quarter: 2013Q4

REPORT INFORMATION
  Report Type: Spontaneous
  Country: US (occurrence: None)
  Receive Date: 20131118
  Receipt Date: 20131118
  Transmission Date: 20140711
  Serious: Yes (Other)
  Sender: FDA-Public Use
  Company Number: None

PATIENT
  Age: 24 Year
  Sex: Male
  Weight: 57.7 kg

DRUGS (10)
  1. GENTAMICIN [Suspect]
     Indication: PHARYNGEAL ABSCESS
     Route: 042
     Dates: start: 20131113, end: 20131114
  2. KCL [Concomitant]
  3. AMPICILLIN SULBACTAM [Concomitant]
  4. CLINDAMYCIN [Concomitant]
  5. ACETAMINOPHEN [Concomitant]
  6. ENOXAPARIN [Concomitant]
  7. KETOROLAC [Concomitant]
  8. NALOXONE [Concomitant]
  9. NICOTINE PATCH [Concomitant]
  10. ONDANSETRON [Concomitant]

REACTIONS (2)
  - Drug level changed [None]
  - Wrong drug administered [None]
